FAERS Safety Report 14151926 (Version 1)
Quarter: 2017Q4

REPORT INFORMATION
  Report Type: Spontaneous
  Country: US (occurrence: US)
  Receive Date: 20171101
  Receipt Date: 20171101
  Transmission Date: 20180321
  Serious: No
  Sender: FDA-Public Use
  Company Number: None

PATIENT
  Age: 38 Year
  Sex: Female
  Weight: 76.5 kg

DRUGS (1)
  1. GABAPENTIN 100 MG CAP CIPL [Suspect]
     Active Substance: GABAPENTIN
     Indication: HERNIA REPAIR
     Dosage: ?          QUANTITY:42 TABLET(S);?
     Route: 048
     Dates: start: 20171002, end: 20171027

REACTIONS (2)
  - Pruritus [None]
  - Neurosis [None]

NARRATIVE: CASE EVENT DATE: 20171023
